FAERS Safety Report 5248773-2 (Version None)
Quarter: 2007Q1

REPORT INFORMATION
  Report Type: 
  Country: None (occurrence: None)
  Receive Date: 20070228
  Receipt Date: 20060215
  Transmission Date: 20070707
  Serious: No
  Sender: FDA-Public Use
  Company Number: US-GLAXOSMITHKLINE-A0590477A

PATIENT
  Age: 26 Year
  Sex: Female
  Weight: 57.3 kg

DRUGS (2)
  1. VALTREX [Suspect]
     Indication: CHEILITIS
     Dosage: 1000MG THREE TIMES PER DAY
     Route: 048
     Dates: start: 20051129, end: 20051218
  2. NUVARING [Concomitant]

REACTIONS (2)
  - ARTHRALGIA [None]
  - ARTHRITIS [None]
